FAERS Safety Report 4543632-2 (Version None)
Quarter: 2005Q1

REPORT INFORMATION
  Report Type: 
  Country: None (occurrence: None)
  Receive Date: 20050103
  Receipt Date: 20041214
  Transmission Date: 20050727
  Serious: Yes (Hospitalization)
  Sender: FDA-Public Use
  Company Number: DE-GLAXOSMITHKLINE-D0045466A

PATIENT
  Age: 57 Year
  Sex: Female

DRUGS (12)
  1. VALTREX [Suspect]
     Indication: HERPES ZOSTER
     Dosage: 2TAB PER DAY
     Route: 048
     Dates: start: 20041209, end: 20041211
  2. CATAPRESAN [Concomitant]
     Dosage: 150MG TWICE PER DAY
     Route: 065
  3. CLONIDIN [Concomitant]
     Dosage: 250MG TWICE PER DAY
     Route: 065
  4. BLOPRESS [Concomitant]
     Dosage: 8MG TWICE PER DAY
     Route: 065
  5. BISOPROLOL FUMARATE [Concomitant]
     Dosage: 5MG PER DAY
     Route: 065
  6. EBRANTIL [Concomitant]
     Dosage: 60MG TWICE PER DAY
     Route: 065
  7. INSIDON [Concomitant]
     Route: 065
  8. CALCIUM ACETATE [Concomitant]
     Dosage: 950MG FOUR TIMES PER DAY
     Route: 065
  9. ALGELDRATE [Concomitant]
     Route: 065
  10. AQUAPHOR [Concomitant]
     Dosage: 10MG PER DAY
     Route: 065
  11. FUROSEMIDE [Concomitant]
     Dosage: 40MG THREE TIMES PER DAY
     Route: 065
  12. LACTULOSE [Concomitant]
     Route: 065

REACTIONS (4)
  - DELUSION [None]
  - HALLUCINATION, TACTILE [None]
  - HALLUCINATION, VISUAL [None]
  - PSYCHOTIC DISORDER [None]
